FAERS Safety Report 7122201-4 (Version None)
Quarter: 2010Q4

REPORT INFORMATION
  Report Type: 
  Country: None (occurrence: None)
  Receive Date: 20101124
  Receipt Date: 20101123
  Transmission Date: 20110411
  Serious: Yes (Life-Threatening, Hospitalization)
  Sender: FDA-Public Use
  Company Number: GXKR2010DE13119

PATIENT
  Age: 52 Year
  Sex: Female
  Weight: 89.5 kg

DRUGS (3)
  1. BISOPROLOL (NGX) [Suspect]
     Indication: HYPERTENSION
     Dosage: 5 MG, QD
     Route: 048
     Dates: start: 20030101
  2. ARCOXIA [Suspect]
     Indication: OSTEOARTHRITIS
     Dosage: 90 MG, BID
     Route: 048
     Dates: start: 20080416, end: 20080503
  3. SYMBICORT [Concomitant]

REACTIONS (1)
  - HEPATIC NECROSIS [None]
